FAERS Safety Report 8092128-2 (Version None)
Quarter: 2012Q1

REPORT INFORMATION
  Report Type: 
  Country: None (occurrence: None)
  Receive Date: 20120129
  Receipt Date: 20111104
  Transmission Date: 20120608
  Serious: No
  Sender: FDA-Public Use
  Company Number: US-ABBOTT-11P-163-0871887-00

PATIENT
  Sex: Male
  Weight: 129.39 kg

DRUGS (4)
  1. UNKNOWN CREAM [Concomitant]
     Indication: PSORIATIC ARTHROPATHY
  2. METOPROLOL TARTRATE [Concomitant]
     Indication: HYPERTENSION
  3. UNKNOWN MEDICATION [Concomitant]
     Indication: HYPERTENSION
  4. HUMIRA [Suspect]
     Indication: PSORIATIC ARTHROPATHY

REACTIONS (1)
  - ARTHRALGIA [None]
